FAERS Safety Report 24869628 (Version 1)
Quarter: 2025Q1

REPORT INFORMATION
  Report Type: Spontaneous
  Country: US (occurrence: None)
  Receive Date: 20250121
  Receipt Date: 20250121
  Transmission Date: 20250408
  Serious: Yes (Life-Threatening, Disabling)
  Sender: FDA-CTU
  Company Number: None

PATIENT
  Age: 78 Year
  Sex: Male
  Weight: 69.85 kg

DRUGS (2)
  1. INGREZZA [Suspect]
     Active Substance: VALBENAZINE
     Route: 048
     Dates: start: 20230818, end: 20230822
  2. TYLENOL [Concomitant]
     Active Substance: ACETAMINOPHEN

REACTIONS (6)
  - Headache [None]
  - Pain [None]
  - Musculoskeletal stiffness [None]
  - Musculoskeletal stiffness [None]
  - Nerve injury [None]
  - Pain [None]

NARRATIVE: CASE EVENT DATE: 20230825
